FAERS Safety Report 6748613-6 (Version None)
Quarter: 2010Q2

REPORT INFORMATION
  Report Type: 
  Country: None (occurrence: None)
  Receive Date: 20100601
  Receipt Date: 20100524
  Transmission Date: 20101027
  Serious: Yes (Other)
  Sender: FDA-Public Use
  Company Number: US-JNJFOC-20100509417

PATIENT
  Sex: Female

DRUGS (2)
  1. LEVAQUIN [Suspect]
     Indication: SINUSITIS
     Route: 048
  2. LEVAQUIN [Suspect]
     Route: 048

REACTIONS (4)
  - ARTHRALGIA [None]
  - COLITIS [None]
  - INFLUENZA LIKE ILLNESS [None]
  - WEIGHT DECREASED [None]
